FAERS Safety Report 8269612-1 (Version None)
Quarter: 2012Q2

REPORT INFORMATION
  Report Type: 
  Country: None (occurrence: None)
  Receive Date: 20120410
  Receipt Date: 20120329
  Transmission Date: 20120825
  Serious: Yes (Death, Hospitalization)
  Sender: FDA-Public Use
  Company Number: US-BIOGENIDEC-2011BI035195

PATIENT
  Age: 65 Year
  Sex: Female

DRUGS (1)
  1. TYSABRI [Suspect]
     Indication: MULTIPLE SCLEROSIS
     Route: 042
     Dates: start: 20101115, end: 20110719

REACTIONS (10)
  - GASTRIC CANCER [None]
  - CYSTITIS [None]
  - NEOPLASM MALIGNANT [None]
  - INTESTINAL MASS [None]
  - COLON CANCER [None]
  - URINARY BLADDER SARCOMA [None]
  - DEATH [None]
  - BLOOD URINE PRESENT [None]
  - OVARIAN CANCER [None]
  - POLLAKIURIA [None]
